FAERS Safety Report 6127488-2 (Version None)
Quarter: 2009Q1

REPORT INFORMATION
  Report Type: 
  Country: None (occurrence: None)
  Receive Date: 20090323
  Receipt Date: 20090219
  Transmission Date: 20090719
  Serious: No
  Sender: FDA-Public Use
  Company Number: US-BAYER-200914276NA

PATIENT
  Age: 76 Year
  Sex: Female

DRUGS (1)
  1. AVELOX [Suspect]
     Indication: LUNG DISORDER
     Dosage: TOTAL DAILY DOSE: 400 MG  UNIT DOSE: 400 MG
     Dates: start: 20090217

REACTIONS (5)
  - ALTERED VISUAL DEPTH PERCEPTION [None]
  - BALANCE DISORDER [None]
  - FALL [None]
  - HALLUCINATION [None]
  - MALAISE [None]
